FAERS Safety Report 15364058 (Version 2)
Quarter: 2019Q2

REPORT INFORMATION
  Report Type: Spontaneous
  Country: US (occurrence: US)
  Receive Date: 20180908
  Receipt Date: 20190621
  Transmission Date: 20190711
  Serious: Yes (Other)
  Sender: FDA-Public Use
  Company Number: US-TORRENT-00006836

PATIENT
  Sex: Female

DRUGS (2)
  1. IBUPROFEN. [Concomitant]
     Active Substance: IBUPROFEN
     Indication: PYREXIA
     Dosage: UNKNOWN
  2. CITALOPRAM [Suspect]
     Active Substance: CITALOPRAM HYDROBROMIDE
     Indication: DEPRESSION
     Dosage: UNKNOWN
     Dates: start: 201807, end: 20180824

REACTIONS (20)
  - Visual impairment [Not Recovered/Not Resolved]
  - Product dose omission [Unknown]
  - Mood altered [Not Recovered/Not Resolved]
  - Stress [Not Recovered/Not Resolved]
  - Neck pain [Not Recovered/Not Resolved]
  - Restlessness [Not Recovered/Not Resolved]
  - Eye pain [Not Recovered/Not Resolved]
  - Musculoskeletal stiffness [Not Recovered/Not Resolved]
  - Pyrexia [Recovered/Resolved]
  - Headache [Not Recovered/Not Resolved]
  - Vision blurred [Not Recovered/Not Resolved]
  - Blood potassium decreased [Unknown]
  - Decreased appetite [Not Recovered/Not Resolved]
  - Blood magnesium decreased [Unknown]
  - Renal disorder [Not Recovered/Not Resolved]
  - Dizziness [Not Recovered/Not Resolved]
  - Hyperhidrosis [Not Recovered/Not Resolved]
  - Myalgia [Not Recovered/Not Resolved]
  - Insomnia [Not Recovered/Not Resolved]
  - Anxiety [Not Recovered/Not Resolved]
